FAERS Safety Report 9304877 (Version 1)
Quarter: 2013Q2

REPORT INFORMATION
  Report Type: Spontaneous
  Country: US (occurrence: None)
  Receive Date: 20130521
  Receipt Date: 20130521
  Transmission Date: 20140414
  Serious: No
  Sender: FDA-Public Use
  Company Number: None

PATIENT
  Age: 25 Year
  Sex: Female
  Weight: 100.8 kg

DRUGS (1)
  1. IMPLANON [Suspect]
     Indication: CONTRACEPTION
     Dates: start: 20120606, end: 20130416

REACTIONS (5)
  - Menstrual disorder [None]
  - Medical device complication [None]
  - Weight increased [None]
  - Device breakage [None]
  - Device kink [None]
